FAERS Safety Report 12605956 (Version 3)
Quarter: 2022Q3

REPORT INFORMATION
  Report Type: Spontaneous
  Country: US (occurrence: US)
  Receive Date: 20160729
  Receipt Date: 20220810
  Transmission Date: 20221027
  Serious: Yes (Death, Other)
  Sender: FDA-Public Use
  Company Number: US-ACADIA PHARMACEUTICALS INC.-ACA-2016-000213

PATIENT
  Sex: Male
  Weight: 59 kg

DRUGS (12)
  1. NUPLAZID [Suspect]
     Active Substance: PIMAVANSERIN TARTRATE
     Indication: Parkinson^s disease
     Dosage: 34 MILLIGRAM, QD
     Route: 048
  2. NUPLAZID [Suspect]
     Active Substance: PIMAVANSERIN TARTRATE
     Indication: Parkinson^s disease psychosis
     Dosage: 17 MG, QD
     Route: 048
     Dates: start: 20160719, end: 201607
  3. NUPLAZID [Suspect]
     Active Substance: PIMAVANSERIN TARTRATE
     Dosage: 34 MG, QD
     Route: 048
     Dates: start: 20160813
  4. SINEMET [Concomitant]
     Active Substance: CARBIDOPA\LEVODOPA
     Dosage: 50-200 MG 2 TAB Q4 HRS
  5. ADVAIR HFA [Concomitant]
     Active Substance: FLUTICASONE PROPIONATE\SALMETEROL XINAFOATE
     Dosage: 1 DF, QD RESPIRATORY
  6. ASPIRIN [Concomitant]
     Active Substance: ASPIRIN
     Dosage: 81 MG, QD
  7. AZILECT [Concomitant]
     Active Substance: RASAGILINE MESYLATE
  8. SELEGILINE HYDROCHLORIDE [Concomitant]
     Active Substance: SELEGILINE HYDROCHLORIDE
  9. LINZESS [Concomitant]
     Active Substance: LINACLOTIDE
     Indication: Constipation
     Dosage: 145 MICROGRAM, QD
  10. PRAVASTATIN [Concomitant]
     Active Substance: PRAVASTATIN
     Dosage: 40 MG, QD
  11. ATROPINE [ATROPINE SULFATE] [Concomitant]
     Indication: Drooling
     Dosage: UNK
  12. CARBOMER [Concomitant]
     Active Substance: CARBOMER
     Dosage: UNK

REACTIONS (18)
  - Death [Fatal]
  - Loss of consciousness [Recovered/Resolved]
  - Tremor [Recovered/Resolved]
  - Diarrhoea [Not Recovered/Not Resolved]
  - Hypotension [Recovered/Resolved]
  - Heart rate decreased [Unknown]
  - Sleep disorder [Unknown]
  - Abnormal dreams [Unknown]
  - Delusion [Recovering/Resolving]
  - Muscle rigidity [Unknown]
  - Dyskinesia [Unknown]
  - Anxiety [Unknown]
  - Pollakiuria [Unknown]
  - Vomiting [Recovered/Resolved]
  - Asthenia [Not Recovered/Not Resolved]
  - Prescribed underdose [Recovered/Resolved]
  - Confusional state [Recovered/Resolved]
  - Hallucination [Unknown]

NARRATIVE: CASE EVENT DATE: 20160101
